FAERS Safety Report 4849199-3 (Version None)
Quarter: 2005Q4

REPORT INFORMATION
  Report Type: 
  Country: None (occurrence: None)
  Receive Date: 20051209
  Receipt Date: 20050420
  Transmission Date: 20060501
  Serious: Yes (Hospitalization, Disabling)
  Sender: FDA-Public Use
  Company Number: US-MERCK-0504USA03940

PATIENT
  Age: 56 Year
  Sex: Male
  Weight: 114 kg

DRUGS (5)
  1. VIOXX [Suspect]
     Indication: OSTEOARTHRITIS
     Route: 048
     Dates: start: 19991101, end: 20001201
  2. CARDIZEM CD [Concomitant]
     Route: 065
  3. MAXZIDE [Concomitant]
     Route: 065
  4. MAXZIDE [Concomitant]
     Route: 065
  5. LIPITOR [Concomitant]
     Route: 065

REACTIONS (16)
  - ACUTE MYOCARDIAL INFARCTION [None]
  - ARTERIOSCLEROSIS [None]
  - CARDIAC DISORDER [None]
  - CARDIOMEGALY [None]
  - COLECTOMY [None]
  - CORONARY ARTERY DISEASE [None]
  - CORONARY ARTERY STENOSIS [None]
  - DYSPNOEA EXERTIONAL [None]
  - EJECTION FRACTION DECREASED [None]
  - GASTROINTESTINAL DISORDER [None]
  - MYOCARDIAL INFARCTION [None]
  - MYOSITIS [None]
  - POLYTRAUMATISM [None]
  - POST PROCEDURAL COMPLICATION [None]
  - SENSATION OF HEAVINESS [None]
  - VENTRICULAR FIBRILLATION [None]
